FAERS Safety Report 11087306 (Version 1)
Quarter: 2015Q2

REPORT INFORMATION
  Report Type: Spontaneous
  Country: US (occurrence: US)
  Receive Date: 20150504
  Receipt Date: 20150504
  Transmission Date: 20150821
  Serious: No
  Sender: FDA-Public Use
  Company Number: US-BIOGENIDEC-2015BI055805

PATIENT
  Sex: Female

DRUGS (1)
  1. TECFIDERA [Suspect]
     Active Substance: DIMETHYL FUMARATE
     Indication: MULTIPLE SCLEROSIS
     Route: 048
     Dates: start: 20150325

REACTIONS (5)
  - Muscle spasms [Recovered/Resolved]
  - Dysgeusia [Unknown]
  - Fibrin D dimer increased [Unknown]
  - Ultrasound abdomen [Unknown]
  - Dyspnoea [Unknown]
